FAERS Safety Report 9201574 (Version 1)
Quarter: 2013Q2

REPORT INFORMATION
  Report Type: Spontaneous
  Country: US (occurrence: US)
  Receive Date: 20130401
  Receipt Date: 20130401
  Transmission Date: 20140414
  Serious: Yes (Hospitalization)
  Sender: FDA-Public Use
  Company Number: US-BAYER-2013-037425

PATIENT
  Age: 25 Year
  Sex: Female
  Weight: 105.22 kg

DRUGS (3)
  1. YASMIN [Suspect]
     Dosage: UNK
  2. NAPROSYN [Concomitant]
     Route: 048
  3. ALDACTONE [Concomitant]
     Indication: POLYCYSTIC OVARIES

REACTIONS (3)
  - Deep vein thrombosis [None]
  - Pulmonary embolism [None]
  - Deep vein thrombosis [None]
